FAERS Safety Report 9252502 (Version 1)
Quarter: 2013Q2

REPORT INFORMATION
  Report Type: Spontaneous
  Country: GB (occurrence: GB)
  Receive Date: 20130424
  Receipt Date: 20130424
  Transmission Date: 20140414
  Serious: Yes (Other)
  Sender: FDA-Public Use
  Company Number: GB-UCBSA-084075

PATIENT
  Age: 13 Year
  Sex: Male
  Weight: 43.5 kg

DRUGS (1)
  1. METHYLPHENIDATE HYDROCHLORIDE [Suspect]
     Indication: ATTENTION DEFICIT/HYPERACTIVITY DISORDER
     Dosage: DOSE-40 MG
     Route: 048
     Dates: start: 20130105, end: 20130402

REACTIONS (1)
  - Alopecia [Unknown]
